FAERS Safety Report 19292670 (Version 1)
Quarter: 2021Q2

REPORT INFORMATION
  Report Type: Spontaneous
  Country: US (occurrence: US)
  Receive Date: 20210523
  Receipt Date: 20210523
  Transmission Date: 20210717
  Serious: Yes (Hospitalization)
  Sender: FDA-Public Use
  Company Number: None

PATIENT
  Age: 41 Year
  Sex: Male
  Weight: 103.5 kg

DRUGS (3)
  1. WELLBUTRIN [Concomitant]
     Active Substance: BUPROPION HYDROCHLORIDE
  2. CYMBALTA [Concomitant]
     Active Substance: DULOXETINE HYDROCHLORIDE
  3. KRATOM [Suspect]
     Active Substance: HERBALS\MITRAGYNINE
     Indication: ANXIETY
     Dates: start: 20210306, end: 20210315

REACTIONS (7)
  - Nausea [None]
  - Withdrawal syndrome [None]
  - Pain [None]
  - Drug-induced liver injury [None]
  - Pyrexia [None]
  - Blood bilirubin increased [None]
  - Fatigue [None]

NARRATIVE: CASE EVENT DATE: 20210316
